FAERS Safety Report 8581814-3 (Version None)
Quarter: 2012Q3

REPORT INFORMATION
  Report Type: 
  Country: None (occurrence: None)
  Receive Date: 20120809
  Receipt Date: 20120803
  Transmission Date: 20120928
  Serious: Yes (Hospitalization)
  Sender: FDA-Public Use
  Company Number: JP-PFIZER INC-2012037383

PATIENT
  Age: 58 Year
  Sex: Male

DRUGS (2)
  1. XYZAL [Concomitant]
     Dosage: 10 MG, 1X/DAY
     Route: 048
     Dates: start: 20111020
  2. TEMSIROLIMUS [Suspect]
     Indication: METASTATIC RENAL CELL CARCINOMA
     Dosage: 25 MG, WEEKLY
     Dates: start: 20110721, end: 20111020

REACTIONS (3)
  - CHEST X-RAY ABNORMAL [None]
  - DYSPNOEA [None]
  - INTERSTITIAL LUNG DISEASE [None]
